FAERS Safety Report 5700482-9 (Version None)
Quarter: 2008Q2

REPORT INFORMATION
  Report Type: 
  Country: None (occurrence: None)
  Receive Date: 20080408
  Receipt Date: 20080408
  Transmission Date: 20081010
  Serious: Yes (Disabling)
  Sender: FDA-Public Use
  Company Number: None

PATIENT
  Age: 70 Year
  Sex: Female
  Weight: 68.0396 kg

DRUGS (2)
  1. PRAVASTATIN [Suspect]
     Dosage: 1 TABLET DAILY PO
     Route: 048
     Dates: start: 20020101, end: 20080322
  2. GEMFIBROZIL [Suspect]
     Dosage: 1TABLET AT BED TIME PO
     Route: 048
     Dates: start: 20020101, end: 20080322

REACTIONS (1)
  - MYALGIA [None]
